FAERS Safety Report 4639158-8 (Version None)
Quarter: 2005Q2

REPORT INFORMATION
  Report Type: 
  Country: None (occurrence: None)
  Receive Date: 20050418
  Receipt Date: 20050408
  Transmission Date: 20051028
  Serious: Yes (Hospitalization)
  Sender: FDA-Public Use
  Company Number: 200510962GDS

PATIENT
  Age: 19 Year
  Sex: Male

DRUGS (6)
  1. CIPROFLOXACIN [Suspect]
     Indication: PROSTATITIS
     Dosage: 500 MG, BID, ORAL
     Route: 048
     Dates: start: 20050211
  2. ZYPREXA [Suspect]
     Indication: PSYCHOTIC DISORDER
     Dosage: 5 MG, TOTAL DAILY, ORAL
     Route: 048
     Dates: end: 20050210
  3. ESOMEPRAZOL [Concomitant]
  4. TRAMADOL HCL [Concomitant]
  5. LORAZEPAM [Concomitant]
  6. NADROPARIN [Concomitant]

REACTIONS (5)
  - CONDITION AGGRAVATED [None]
  - DRUG WITHDRAWAL SYNDROME [None]
  - NEUROLEPTIC MALIGNANT SYNDROME [None]
  - PROSTATITIS [None]
  - PSYCHOTIC DISORDER [None]
